FAERS Safety Report 19470269 (Version 1)
Quarter: 2021Q2

REPORT INFORMATION
  Report Type: Spontaneous
  Country: CN (occurrence: CN)
  Receive Date: 20210628
  Receipt Date: 20210628
  Transmission Date: 20210717
  Serious: Yes (Other)
  Sender: FDA-Public Use
  Company Number: CN-PFIZER INC-2021727397

PATIENT
  Age: 82 Year
  Sex: Male
  Weight: 65 kg

DRUGS (4)
  1. LEVOFLOXACIN. [Suspect]
     Active Substance: LEVOFLOXACIN
     Indication: BENIGN PROSTATIC HYPERPLASIA
  2. DOXAZOSIN MESILATE [Suspect]
     Active Substance: DOXAZOSIN MESYLATE
     Indication: PROSTATITIS
     Dosage: 4 MG, 1X/DAY
     Route: 048
     Dates: start: 20210422, end: 20210529
  3. LEVOFLOXACIN. [Suspect]
     Active Substance: LEVOFLOXACIN
     Indication: PROSTATITIS
     Dosage: 0.5 G, 1X/DAY
     Route: 048
     Dates: start: 20210422, end: 20210529
  4. DOXAZOSIN MESILATE [Suspect]
     Active Substance: DOXAZOSIN MESYLATE
     Indication: BENIGN PROSTATIC HYPERPLASIA
     Dosage: 4 MG, 1X/DAY
     Route: 048
     Dates: start: 20210422, end: 20210529

REACTIONS (4)
  - Pain in extremity [Unknown]
  - Thrombosis [Unknown]
  - Calcium deficiency [Unknown]
  - Tendon rupture [Unknown]

NARRATIVE: CASE EVENT DATE: 20210427
